FAERS Safety Report 18427043 (Version 1)
Quarter: 2020Q4

REPORT INFORMATION
  Report Type: Spontaneous
  Country: GB (occurrence: GB)
  Receive Date: 20201026
  Receipt Date: 20201026
  Transmission Date: 20210114
  Serious: Yes (Other)
  Sender: FDA-Public Use
  Company Number: GB-PFIZER INC-2020408533

PATIENT
  Age: 85 Year
  Sex: Female
  Weight: 72.55 kg

DRUGS (19)
  1. NIZATIDINE. [Concomitant]
     Active Substance: NIZATIDINE
  2. LEVOTHYROXINE. [Concomitant]
     Active Substance: LEVOTHYROXINE
  3. FILGRASTIM [Suspect]
     Active Substance: FILGRASTIM
     Indication: NEUTROPENIA
     Dosage: 480 MG, DAILY
     Route: 058
     Dates: start: 20200916, end: 20200919
  4. FLUCONAZOLE. [Concomitant]
     Active Substance: FLUCONAZOLE
  5. HYDROCORTISONE. [Concomitant]
     Active Substance: HYDROCORTISONE
  6. CYCLIZINE [Concomitant]
     Active Substance: CYCLIZINE
  7. PARACETAMOL [Concomitant]
     Active Substance: ACETAMINOPHEN
  8. ONDANSETRON HYDROCHLORIDE. [Concomitant]
     Active Substance: ONDANSETRON HYDROCHLORIDE
  9. OMEPRAZOLE. [Concomitant]
     Active Substance: OMEPRAZOLE
  10. INSULIN [Concomitant]
     Active Substance: INSULIN NOS
  11. METRONIDAZOLE. [Concomitant]
     Active Substance: METRONIDAZOLE
  12. CEFALEXIN [Concomitant]
     Active Substance: CEPHALEXIN
  13. LINAGLIPTIN [Concomitant]
     Active Substance: LINAGLIPTIN
  14. MORPHINE [Concomitant]
     Active Substance: MORPHINE
  15. BUMETANIDE. [Concomitant]
     Active Substance: BUMETANIDE
  16. CIPROFLOXACIN. [Concomitant]
     Active Substance: CIPROFLOXACIN
  17. CASSIA SENNA [Concomitant]
     Active Substance: HERBALS\SENNOSIDES
  18. ASPIRIN [ACETYLSALICYLIC ACID] [Concomitant]
     Active Substance: ASPIRIN
  19. FLUOXETINE [Concomitant]
     Active Substance: FLUOXETINE HYDROCHLORIDE

REACTIONS (2)
  - Oesophageal varices haemorrhage [Unknown]
  - Thrombocytopenia [Not Recovered/Not Resolved]

NARRATIVE: CASE EVENT DATE: 20200918
